FAERS Safety Report 7804463-0 (Version None)
Quarter: 2011Q4

REPORT INFORMATION
  Report Type: 
  Country: None (occurrence: None)
  Receive Date: 20111010
  Receipt Date: 20110928
  Transmission Date: 20120403
  Serious: Yes (Hospitalization)
  Sender: FDA-Public Use
  Company Number: US-BAYER-2011-063447

PATIENT
  Age: 37 Year
  Sex: Female
  Weight: 126.98 kg

DRUGS (5)
  1. YASMIN [Suspect]
     Indication: CONTRACEPTION
     Dosage: UNK
     Dates: start: 20040601, end: 20051001
  2. HYDROCODONE BITARTRATE [Concomitant]
     Dosage: UNK UNK, PRN
  3. TORADOL [Concomitant]
     Dosage: UNK UNK, PRN
  4. DROSPIRENONE AND ETHINYL ESTRADIOL [Suspect]
     Indication: CONTRACEPTION
     Dosage: UNK
     Dates: start: 20090201, end: 20090801
  5. JANUMET [Concomitant]
     Dosage: UNK UNK, BID
     Route: 048

REACTIONS (7)
  - DEEP VEIN THROMBOSIS [None]
  - PULMONARY EMBOLISM [None]
  - THROMBOSIS [None]
  - INJURY [None]
  - CHEST PAIN [None]
  - PAIN [None]
  - EMOTIONAL DISTRESS [None]
